FAERS Safety Report 15022124 (Version 3)
Quarter: 2018Q3

REPORT INFORMATION
  Report Type: Spontaneous
  Country: US (occurrence: US)
  Receive Date: 20180618
  Receipt Date: 20180831
  Transmission Date: 20181010
  Serious: Yes (Other)
  Sender: FDA-Public Use
  Company Number: US-SA-2018SA156528

PATIENT
  Age: 62 Year
  Sex: Female
  Weight: 83 kg

DRUGS (4)
  1. TAXOTERE [Suspect]
     Active Substance: DOCETAXEL
     Indication: BREAST CANCER
     Dosage: 142 MG, Q3W
     Route: 042
     Dates: start: 20150518, end: 20150518
  2. TAXOTERE [Suspect]
     Active Substance: DOCETAXEL
     Dosage: 142 MG, Q3W
     Route: 042
     Dates: start: 20150831, end: 20150831
  3. NEOSAR [Concomitant]
     Active Substance: CYCLOPHOSPHAMIDE
     Dosage: 142 UNK
     Dates: start: 20150831, end: 20150831
  4. NEOSAR [Concomitant]
     Active Substance: CYCLOPHOSPHAMIDE
     Dosage: 142 MG, Q3W
     Route: 042
     Dates: start: 20150518, end: 20150518

REACTIONS (2)
  - Psychological trauma [Unknown]
  - Alopecia [Recovering/Resolving]

NARRATIVE: CASE EVENT DATE: 201602
